FAERS Safety Report 19012760 (Version 2)
Quarter: 2021Q2

REPORT INFORMATION
  Report Type: Spontaneous
  Country: US (occurrence: US)
  Receive Date: 20210316
  Receipt Date: 20210420
  Transmission Date: 20210717
  Serious: No
  Sender: FDA-Public Use
  Company Number: US-GILEAD-2021-0520586

PATIENT
  Age: 38 Year
  Sex: Male
  Weight: 89.3 kg

DRUGS (3)
  1. TRUVADA [Suspect]
     Active Substance: EMTRICITABINE\TENOFOVIR DISOPROXIL FUMARATE
     Indication: PROPHYLAXIS AGAINST HIV INFECTION
     Dosage: 1 DOSAGE FORM, QD
     Route: 048
     Dates: start: 20201005
  2. SUMATRIPTAN. [Concomitant]
     Active Substance: SUMATRIPTAN
  3. VALACYCLOVIR HCL [Concomitant]
     Active Substance: VALACYCLOVIR HYDROCHLORIDE

REACTIONS (1)
  - Renal impairment [Recovered/Resolved]

NARRATIVE: CASE EVENT DATE: 20210121
